FAERS Safety Report 17686063 (Version 1)
Quarter: 2020Q2

REPORT INFORMATION
  Report Type: Spontaneous
  Country: US (occurrence: US)
  Receive Date: 20200420
  Receipt Date: 20200420
  Transmission Date: 20200714
  Serious: Yes (Other)
  Sender: FDA-Public Use
  Company Number: None

PATIENT
  Age: 48 Year
  Sex: Female

DRUGS (10)
  1. BENZTROPINE 1MG TABLET [Concomitant]
  2. AUSTEDO [Suspect]
     Active Substance: DEUTETRABENAZINE
     Indication: TARDIVE DYSKINESIA
     Route: 048
  3. OMEPRAZOLE 20MG [Concomitant]
     Active Substance: OMEPRAZOLE
  4. LITHIUM ER 450MG TABLET [Concomitant]
  5. LAMOTRIGINE 200MG TABLET [Concomitant]
  6. PROVIGIL 200MG TABLET [Concomitant]
  7. BUPROPION XL 150MG TABLET [Concomitant]
  8. AUSTEDO [Suspect]
     Active Substance: DEUTETRABENAZINE
     Indication: TARDIVE DYSKINESIA
     Route: 048
  9. PROPRANOLOL 20MG TABLET [Concomitant]
  10. ARIPIPRAZOLE 15MG TABLET [Concomitant]
     Active Substance: ARIPIPRAZOLE

REACTIONS (1)
  - Muscular weakness [None]
